FAERS Safety Report 24103253 (Version 1)
Quarter: 2024Q3

REPORT INFORMATION
  Report Type: Report from Study
  Country: US (occurrence: None)
  Receive Date: 20240717
  Receipt Date: 20240717
  Transmission Date: 20241016
  Serious: Yes (Other)
  Sender: ASTRAZENECA
  Company Number: 2020SE72822

PATIENT
  Sex: Female

DRUGS (1)
  1. LYNPARZA [Suspect]
     Active Substance: OLAPARIB
     Indication: Ovarian cancer
     Route: 048
     Dates: start: 20200519

REACTIONS (10)
  - Neuropathy peripheral [Unknown]
  - Fatigue [Unknown]
  - Nausea [Unknown]
  - Oral pain [Not Recovered/Not Resolved]
  - Thirst [Unknown]
  - Skin exfoliation [Unknown]
  - Pain [Unknown]
  - Pruritus [Unknown]
  - Irritability [Unknown]
  - Parosmia [Unknown]
